FAERS Safety Report 9771789 (Version 1)
Quarter: 2013Q3

REPORT INFORMATION
  Report Type: Spontaneous
  Country: US (occurrence: None)
  Receive Date: 20130917
  Receipt Date: 20130917
  Transmission Date: 20140515
  Serious: Yes (Hospitalization, Other)
  Sender: FDA-Public Use
  Company Number: ADR-2013-00816

PATIENT
  Sex: Male

DRUGS (4)
  1. LIORESAL [Suspect]
     Indication: MUSCLE SPASTICITY
  2. BACLOFEN [Concomitant]
  3. DIAZEPAM [Concomitant]
  4. CITALOPRA [Concomitant]

REACTIONS (29)
  - Drug ineffective [None]
  - General physical health deterioration [None]
  - Dysstasia [None]
  - Joint hyperextension [None]
  - Joint range of motion decreased [None]
  - Hypokinesia [None]
  - Muscle rigidity [None]
  - Local swelling [None]
  - Local swelling [None]
  - Micturition urgency [None]
  - Scar [None]
  - Medical device complication [None]
  - Wheelchair user [None]
  - Defaecation urgency [None]
  - Overdose [None]
  - Somnolence [None]
  - Dizziness [None]
  - Respiratory rate decreased [None]
  - Hypopnoea [None]
  - Loss of consciousness [None]
  - Feeling abnormal [None]
  - Fall [None]
  - Frustration [None]
  - Muscle spasticity [None]
  - Clonus [None]
  - Condition aggravated [None]
  - Pain in extremity [None]
  - Arthralgia [None]
  - Abasia [None]
